FAERS Safety Report 7480953-8 (Version None)
Quarter: 2011Q2

REPORT INFORMATION
  Report Type: 
  Country: None (occurrence: None)
  Receive Date: 20110512
  Receipt Date: 20110512
  Transmission Date: 20111010
  Serious: Yes (Other)
  Sender: FDA-Public Use
  Company Number: None

PATIENT
  Age: 46 Year
  Sex: Female
  Weight: 102.0593 kg

DRUGS (3)
  1. FENTANYL-100 [Concomitant]
  2. MELOXICAM [Suspect]
     Indication: BACK PAIN
     Dosage: 7.5MG DAILY-BID PO
     Route: 048
     Dates: start: 20110426, end: 20110505
  3. OXYCODONE HCL AND ACETAMINOPHEN [Concomitant]

REACTIONS (3)
  - ABNORMAL DREAMS [None]
  - ABDOMINAL DISCOMFORT [None]
  - DEPRESSION [None]
